FAERS Safety Report 12628477 (Version 1)
Quarter: 2016Q3

REPORT INFORMATION
  Report Type: Spontaneous
  Country: US (occurrence: None)
  Receive Date: 20160805
  Receipt Date: 20160805
  Transmission Date: 20161109
  Serious: Yes (Other)
  Sender: FDA-Public Use
  Company Number: None

PATIENT
  Age: 55 Year
  Sex: Female
  Weight: 95.26 kg

DRUGS (10)
  1. GLUCOSAMINE [Concomitant]
     Active Substance: GLUCOSAMINE
  2. MELOXICAM. [Concomitant]
     Active Substance: MELOXICAM
  3. COENZYME Q10 [Concomitant]
     Active Substance: UBIDECARENONE
  4. MELATONIN [Concomitant]
     Active Substance: MELATONIN
  5. DIPHENHYDRAMINE. [Concomitant]
     Active Substance: DIPHENHYDRAMINE
  6. NORCO [Suspect]
     Active Substance: ACETAMINOPHEN\HYDROCODONE BITARTRATE
     Indication: PROCEDURAL PAIN
     Route: 048
     Dates: start: 20160721, end: 20160724
  7. ROPINEROL [Concomitant]
  8. ATOROVASTIN [Concomitant]
  9. VITAMIN D [Concomitant]
     Active Substance: CHOLECALCIFEROL
  10. LISINOPHRIL-HYDROCHLOTHAZIDE [Concomitant]

REACTIONS (3)
  - Feeling abnormal [None]
  - Constipation [None]
  - Nightmare [None]

NARRATIVE: CASE EVENT DATE: 20160724
